FAERS Safety Report 5549484-6 (Version None)
Quarter: 2007Q4

REPORT INFORMATION
  Report Type: 
  Country: None (occurrence: None)
  Receive Date: 20071212
  Receipt Date: 20071203
  Transmission Date: 20080405
  Serious: Yes (Other)
  Sender: FDA-Public Use
  Company Number: US-JNJFOC-20071202068

PATIENT
  Sex: Female
  Weight: 59.42 kg

DRUGS (12)
  1. FENTANYL TRANSDERMAL SYSTEM [Suspect]
     Indication: ARTHRITIS
     Route: 062
  2. FENTANYL TRANSDERMAL SYSTEM [Suspect]
     Indication: FIBROMYALGIA
     Route: 062
  3. FENTANYL TRANSDERMAL SYSTEM [Suspect]
     Indication: PAIN
     Route: 062
  4. FENTANYL TRANSDERMAL SYSTEM [Suspect]
     Indication: ARTHRITIS
     Route: 062
  5. FENTANYL TRANSDERMAL SYSTEM [Suspect]
     Indication: FIBROMYALGIA
     Route: 062
  6. FENTANYL TRANSDERMAL SYSTEM [Suspect]
     Indication: PAIN
     Route: 062
  7. DURAGESIC-100 [Suspect]
     Indication: ARTHRITIS
     Route: 062
  8. DURAGESIC-100 [Suspect]
     Indication: FIBROMYALGIA
     Route: 062
  9. DURAGESIC-100 [Suspect]
     Indication: PAIN
     Route: 062
  10. PEPCID [Concomitant]
     Indication: GASTRIC DISORDER
     Route: 048
  11. CODEINE [Concomitant]
     Indication: BREAKTHROUGH PAIN
     Route: 048
  12. CELEBREX [Concomitant]
     Indication: PAIN
     Dosage: DAILY AS NEEDED
     Route: 048

REACTIONS (4)
  - BEDRIDDEN [None]
  - DIZZINESS [None]
  - PAIN [None]
  - SJOGREN'S SYNDROME [None]
